FAERS Safety Report 12883966 (Version 2)
Quarter: 2016Q4

REPORT INFORMATION
  Report Type: Spontaneous
  Country: US (occurrence: US)
  Receive Date: 20161026
  Receipt Date: 20161102
  Transmission Date: 20170207
  Serious: No
  Sender: FDA-Public Use
  Company Number: US-PFIZER INC-2016495515

PATIENT
  Age: 58 Year
  Sex: Female

DRUGS (7)
  1. LYRICA [Suspect]
     Active Substance: PREGABALIN
     Indication: MYALGIA
  2. CETIRIZINE [Concomitant]
     Active Substance: CETIRIZINE HYDROCHLORIDE
     Dosage: 10 MG, DAILY
     Route: 048
  3. FLUTICASONE [Concomitant]
     Active Substance: FLUTICASONE\FLUTICASONE PROPIONATE
     Dosage: 2 DF, DAILY
     Route: 045
  4. LYRICA [Suspect]
     Active Substance: PREGABALIN
     Indication: MYOSITIS
  5. HYDROCORTISONE. [Concomitant]
     Active Substance: HYDROCORTISONE
     Dosage: 1 %, DAILY
     Route: 061
  6. ZOLOFT [Concomitant]
     Active Substance: SERTRALINE HYDROCHLORIDE
     Dosage: 200 MG, DAILY
  7. LYRICA [Suspect]
     Active Substance: PREGABALIN
     Indication: FIBROMYALGIA
     Dosage: 150 MG, 2X/DAY
     Route: 048

REACTIONS (11)
  - Headache [Unknown]
  - Joint swelling [Unknown]
  - Fatigue [Unknown]
  - Crying [Unknown]
  - Feeling hot [Unknown]
  - Ear pain [Unknown]
  - Back pain [Unknown]
  - Arthralgia [Unknown]
  - Rash [Unknown]
  - Oedema peripheral [Unknown]
  - Pain in extremity [Unknown]
